FAERS Safety Report 24118021 (Version 1)
Quarter: 2024Q3

REPORT INFORMATION
  Report Type: Report from Study
  Country: CO (occurrence: None)
  Receive Date: 20240722
  Receipt Date: 20240722
  Transmission Date: 20241017
  Serious: Yes (Hospitalization)
  Sender: ASTRAZENECA
  Company Number: 2019SF42717

PATIENT
  Age: 30410 Day
  Sex: Male

DRUGS (1)
  1. SYMBICORT [Suspect]
     Active Substance: BUDESONIDE\FORMOTEROL FUMARATE DIHYDRATE
     Indication: Asthma
     Dosage: 320 UG, UNKNOWN UNKNOWN
     Route: 055
     Dates: start: 20150907

REACTIONS (1)
  - Hepatic mass [Unknown]

NARRATIVE: CASE EVENT DATE: 20190930
